FAERS Safety Report 12456753 (Version 1)
Quarter: 2016Q2

REPORT INFORMATION
  Report Type: Spontaneous
  Country: BR (occurrence: BR)
  Receive Date: 20160610
  Receipt Date: 20160610
  Transmission Date: 20160815
  Serious: Yes (Other)
  Sender: FDA-Public Use
  Company Number: BR-PFIZER INC-2016288808

PATIENT
  Age: 82 Year
  Sex: Male
  Weight: 69 kg

DRUGS (1)
  1. XALATAN [Suspect]
     Active Substance: LATANOPROST
     Indication: GLAUCOMA
     Dosage: 1 GTT, 1 DROP PER DAY
     Route: 047
     Dates: start: 2011, end: 20151006

REACTIONS (1)
  - Retinal disorder [Unknown]
